FAERS Safety Report 8433805-0 (Version None)
Quarter: 2012Q2

REPORT INFORMATION
  Report Type: 
  Country: None (occurrence: None)
  Receive Date: 20120613
  Receipt Date: 20120611
  Transmission Date: 20120825
  Serious: Yes (Hospitalization, Other)
  Sender: FDA-Public Use
  Company Number: US-PFIZER INC-2012109157

PATIENT
  Sex: Female
  Weight: 69.4 kg

DRUGS (6)
  1. TRAMADOL [Concomitant]
     Indication: BACK DISORDER
     Dosage: 50 MG, 4X/DAY
  2. LYRICA [Suspect]
     Indication: FIBROMYALGIA
     Dosage: 225 MG, 2X/DAY
     Route: 048
  3. LYRICA [Suspect]
     Dosage: 225 MG, 2X/DAY
     Route: 048
     Dates: start: 20110101
  4. KLONOPIN [Concomitant]
     Indication: PANIC DISORDER
     Dosage: 1 MG, 4X/DAY
  5. LYRICA [Suspect]
     Dosage: UNK
  6. ABILIFY [Concomitant]
     Indication: DEPRESSION
     Dosage: 10 MG, 2X/DAY

REACTIONS (3)
  - TRAUMATIC LUNG INJURY [None]
  - ROAD TRAFFIC ACCIDENT [None]
  - WEIGHT INCREASED [None]
